FAERS Safety Report 5428857-6 (Version None)
Quarter: 2007Q3

REPORT INFORMATION
  Report Type: 
  Country: None (occurrence: None)
  Receive Date: 20070824
  Receipt Date: 20070820
  Transmission Date: 20080115
  Serious: Yes (Other)
  Sender: FDA-Public Use
  Company Number: US020766

PATIENT
  Age: 61 Year
  Sex: Male

DRUGS (4)
  1. PROVIGIL [Suspect]
     Indication: FATIGUE
     Dosage: 100 MG ORAL
     Route: 048
     Dates: start: 20060201, end: 20060201
  2. PROVIGIL [Suspect]
     Indication: MULTIPLE SCLEROSIS
     Dosage: 100 MG ORAL
     Route: 048
     Dates: start: 20060201, end: 20060201
  3. BACLOFEN [Concomitant]
  4. OXYBUTYNIN CHLORIDE [Concomitant]

REACTIONS (2)
  - AGGRESSION [None]
  - IRRITABILITY [None]
